FAERS Safety Report 10050671 (Version 1)
Quarter: 2014Q2

REPORT INFORMATION
  Report Type: Spontaneous
  Country: US (occurrence: US)
  Receive Date: 20140401
  Receipt Date: 20140401
  Transmission Date: 20141212
  Serious: No
  Sender: FDA-Public Use
  Company Number: US-ASTRAZENECA-2013SE62729

PATIENT
  Age: 51 Year
  Sex: Female
  Weight: 72.6 kg

DRUGS (3)
  1. NEXIUM [Suspect]
     Indication: GASTROOESOPHAGEAL REFLUX DISEASE
     Route: 048
     Dates: start: 2001, end: 2005
  2. RANITIDINE [Suspect]
     Indication: GASTRIC DISORDER
     Route: 048
     Dates: start: 2005
  3. OTHER ANTACIDS [Suspect]
     Route: 065

REACTIONS (3)
  - Choking [Unknown]
  - Gastric disorder [Unknown]
  - Aphagia [Unknown]
